FAERS Safety Report 5749045-X (Version None)
Quarter: 2008Q2

REPORT INFORMATION
  Report Type: 
  Country: None (occurrence: None)
  Receive Date: 20080522
  Receipt Date: 20080508
  Transmission Date: 20081010
  Serious: Yes (Hospitalization)
  Sender: FDA-Public Use
  Company Number: 8032669

PATIENT
  Age: 57 Year
  Sex: Female

DRUGS (2)
  1. KEPPRA [Suspect]
     Indication: CONVULSION
     Dosage: 2 G 2/D PO
     Route: 048
     Dates: start: 20070101
  2. LYRICA [Concomitant]

REACTIONS (1)
  - CHOLESTASIS [None]
